FAERS Safety Report 9288997 (Version 3)
Quarter: 2013Q3

REPORT INFORMATION
  Report Type: Spontaneous
  Country: JP (occurrence: JP)
  Receive Date: 20130514
  Receipt Date: 20130705
  Transmission Date: 20140515
  Serious: Yes (Other)
  Sender: FDA-Public Use
  Company Number: JP-VERTEX PHARMACEUTICALS INC-2013-005996

PATIENT
  Age: 51 Year
  Sex: Male

DRUGS (3)
  1. TELAVIC [Suspect]
     Indication: CHRONIC HEPATITIS C
     Dosage: 2250 MG, QD
     Route: 048
     Dates: start: 20130218, end: 20130416
  2. REBETOL [Concomitant]
     Dosage: 800 MG, QD
     Route: 048
     Dates: start: 20130218, end: 20130416
  3. PEGINTRON [Concomitant]
     Dosage: 1.35 ?G/KG, QW
     Route: 058
     Dates: start: 20130218, end: 20130416

REACTIONS (2)
  - Skin exfoliation [Recovered/Resolved]
  - Hyperkeratosis [Recovered/Resolved]
